FAERS Safety Report 7110439-1 (Version None)
Quarter: 2010Q4

REPORT INFORMATION
  Report Type: 
  Country: None (occurrence: None)
  Receive Date: 20101118
  Receipt Date: 20101109
  Transmission Date: 20110411
  Serious: Yes (Other)
  Sender: FDA-Public Use
  Company Number: CA-JNJFOC-20101103734

PATIENT
  Sex: Female

DRUGS (4)
  1. REMICADE [Suspect]
     Indication: RHEUMATOID ARTHRITIS
     Route: 042
  2. REMICADE [Suspect]
     Route: 042
  3. REMICADE [Suspect]
     Indication: ANKYLOSING SPONDYLITIS
     Route: 042
  4. REMICADE [Suspect]
     Route: 042

REACTIONS (5)
  - ABDOMINAL PAIN [None]
  - DYSPNOEA [None]
  - FATIGUE [None]
  - OEDEMA PERIPHERAL [None]
  - SYSTEMIC LUPUS ERYTHEMATOSUS [None]
